FAERS Safety Report 22023080 (Version 2)
Quarter: 2023Q2

REPORT INFORMATION
  Report Type: Other
  Country: JP (occurrence: JP)
  Receive Date: 20230222
  Receipt Date: 20230403
  Transmission Date: 20230722
  Serious: Yes (Other)
  Sender: FDA-Public Use
  Company Number: JP-ALVOGEN-2023089284

PATIENT
  Age: 67 Year
  Sex: Female

DRUGS (3)
  1. DOXORUBICIN [Suspect]
     Active Substance: DOXORUBICIN
     Indication: Breast cancer stage II
     Dosage: COMPLETED 4 COURSES OF DOSE DENSE AC THERAPY.
     Dates: start: 202007
  2. CYCLOPHOSPHAMIDE [Suspect]
     Active Substance: CYCLOPHOSPHAMIDE
     Indication: Breast cancer stage II
     Dosage: COMPLETED 4 COURSES.
     Dates: start: 202007
  3. PACLITAXEL [Concomitant]
     Active Substance: PACLITAXEL
     Indication: Breast cancer stage II
     Dosage: DOSE-DENSE PACLITAXEL THERAPY

REACTIONS (2)
  - Interstitial lung disease [Recovered/Resolved]
  - Cardiac dysfunction [Unknown]
